FAERS Safety Report 21322047 (Version 2)
Quarter: 2022Q3

REPORT INFORMATION
  Report Type: Spontaneous
  Country: BR (occurrence: None)
  Receive Date: 20220912
  Receipt Date: 20220928
  Transmission Date: 20221027
  Serious: Yes (Other)
  Sender: FDA-Public Use
  Company Number: BR-ROCHE-3174977

PATIENT
  Sex: Male

DRUGS (14)
  1. ATEZOLIZUMAB [Suspect]
     Active Substance: ATEZOLIZUMAB
     Indication: Hepatocellular carcinoma
     Route: 065
     Dates: start: 20201022, end: 20210517
  2. BEVACIZUMAB [Suspect]
     Active Substance: BEVACIZUMAB
     Indication: Hepatocellular carcinoma
     Route: 065
     Dates: start: 20201022, end: 20210517
  3. SORAFENIB [Suspect]
     Active Substance: SORAFENIB
     Indication: Hepatocellular carcinoma
     Route: 065
     Dates: start: 20210703, end: 20210913
  4. HYDROCHLOROTHIAZIDE [Concomitant]
     Active Substance: HYDROCHLOROTHIAZIDE
  5. CAPTOPRIL [Concomitant]
     Active Substance: CAPTOPRIL
  6. ASPIRIN [Concomitant]
     Active Substance: ASPIRIN
  7. AMLODIPINE [Concomitant]
     Active Substance: AMLODIPINE BESYLATE
  8. METFORMIN [Concomitant]
     Active Substance: METFORMIN HYDROCHLORIDE
  9. GLICLAZIDE [Concomitant]
     Active Substance: GLICLAZIDE
  10. ALLOPURINOL [Concomitant]
     Active Substance: ALLOPURINOL
  11. PIOGLITAZONE [Concomitant]
     Active Substance: PIOGLITAZONE
  12. PROPRANOLOL [Concomitant]
     Active Substance: PROPRANOLOL HYDROCHLORIDE
  13. ESCITALOPRAM [Concomitant]
     Active Substance: ESCITALOPRAM OXALATE
  14. ZOLPIDEM [Concomitant]
     Active Substance: ZOLPIDEM TARTRATE

REACTIONS (3)
  - Metastases to bone [Unknown]
  - Alpha 1 foetoprotein increased [Unknown]
  - Ulcerative keratitis [Unknown]

NARRATIVE: CASE EVENT DATE: 20210101
